FAERS Safety Report 8435355-4 (Version None)
Quarter: 2012Q2

REPORT INFORMATION
  Report Type: 
  Country: None (occurrence: None)
  Receive Date: 20120614
  Receipt Date: 20120607
  Transmission Date: 20120825
  Serious: Yes (Hospitalization)
  Sender: FDA-Public Use
  Company Number: FR-PFIZER INC-2012136775

PATIENT
  Age: 75 Year
  Sex: Male

DRUGS (3)
  1. HYDREA [Concomitant]
     Indication: POLYCYTHAEMIA VERA
  2. SUTENT [Suspect]
     Indication: RENAL NEOPLASM
     Dosage: UNK
     Dates: start: 20090202
  3. OXYCONTIN [Concomitant]
     Indication: PAIN
     Dosage: UNK
     Dates: start: 20090201

REACTIONS (3)
  - CYTOLYTIC HEPATITIS [None]
  - RENAL FAILURE [None]
  - CHOLESTASIS [None]
